FAERS Safety Report 14596972 (Version 1)
Quarter: 2018Q1

REPORT INFORMATION
  Report Type: Report from Study
  Country: DK (occurrence: DK)
  Receive Date: 20180305
  Receipt Date: 20180305
  Transmission Date: 20180509
  Serious: Yes (Other)
  Sender: FDA-Public Use
  Company Number: DK-ROCHE-2049509

PATIENT

DRUGS (3)
  1. IRINOTECAN [Suspect]
     Active Substance: IRINOTECAN
     Indication: GLIOBLASTOMA
     Dosage: 125 MG/M2 OR 340 MG/M2
     Route: 065
  2. LOMUSTINE. [Suspect]
     Active Substance: LOMUSTINE
     Indication: GLIOBLASTOMA
     Route: 065
  3. BEVACIZUMAB. [Suspect]
     Active Substance: BEVACIZUMAB
     Indication: GLIOBLASTOMA
     Route: 042

REACTIONS (24)
  - Aspartate aminotransferase increased [Unknown]
  - Alanine aminotransferase increased [Unknown]
  - Diarrhoea [Unknown]
  - Cerebral infarction [Unknown]
  - Infection [Unknown]
  - Haemorrhage intracranial [Unknown]
  - Decreased appetite [Unknown]
  - Embolism [Unknown]
  - Hypertension [Unknown]
  - Proteinuria [Unknown]
  - Constipation [Unknown]
  - Stomatitis [Unknown]
  - Leukopenia [Unknown]
  - Alopecia [Unknown]
  - Haemorrhage [Unknown]
  - Hypokalaemia [Unknown]
  - Gastrointestinal perforation [Unknown]
  - Fatigue [Unknown]
  - Deep vein thrombosis [Unknown]
  - Vomiting [Unknown]
  - Pulmonary embolism [Unknown]
  - Nausea [Unknown]
  - Thrombocytopenia [Unknown]
  - Hyperkalaemia [Unknown]
